FAERS Safety Report 8969465 (Version 1)
Quarter: 2012Q4

REPORT INFORMATION
  Report Type: 
  Country: FR (occurrence: FR)
  Receive Date: 20121218
  Receipt Date: 20121218
  Transmission Date: 20130627
  Serious: Yes (Death, Congenital Anomaly, Other)
  Sender: FDA-Public Use
  Company Number: FR-009507513-1010FRA00081B1

PATIENT

DRUGS (4)
  1. JANUVIA [Suspect]
     Indication: TYPE 1 DIABETES MELLITUS
     Route: 064
     Dates: end: 20091019
  2. COMPETACT [Suspect]
     Indication: TYPE 1 DIABETES MELLITUS
     Route: 064
     Dates: end: 20091019
  3. INSULATARD (INSULIN, ISOPHANE) [Concomitant]
     Indication: TYPE 1 DIABETES MELLITUS
     Dosage: UNK
     Route: 064
     Dates: start: 20091020
  4. NOVORAPID [Concomitant]
     Indication: TYPE 1 DIABETES MELLITUS
     Dosage: UNK
     Route: 064
     Dates: start: 20091020

REACTIONS (3)
  - Skull malformation [Fatal]
  - Neural tube defect [Fatal]
  - Foetal exposure during pregnancy [Unknown]
